FAERS Safety Report 5146953-8 (Version None)
Quarter: 2006Q4

REPORT INFORMATION
  Report Type: 
  Country: None (occurrence: None)
  Receive Date: 20061109
  Receipt Date: 20061020
  Transmission Date: 20070319
  Serious: Yes (Life-Threatening, Hospitalization, Other)
  Sender: FDA-Public Use
  Company Number: FR-ELI_LILLY_AND_COMPANY-FR200610003471

PATIENT
  Age: 50 Year
  Sex: Male
  Weight: 79 kg

DRUGS (5)
  1. ZYPREXA [Suspect]
     Indication: SCHIZOPHRENIA
     Dosage: 10 MG, DAILY (1/D)
     Route: 048
     Dates: end: 20060815
  2. NORSET [Concomitant]
     Dosage: 45 MG, DAILY (1/D)
     Route: 048
  3. NOZINAN                                 /NET/ [Concomitant]
     Dosage: 100 MG, DAILY (1/D)
     Route: 048
  4. THERALENE [Concomitant]
     Dosage: 25 MG, DAILY (1/D)
     Route: 048
  5. LEXOMIL [Concomitant]
     Dosage: 1.5 MG, DAILY (1/D)
     Route: 048

REACTIONS (10)
  - BLOOD ALKALINE PHOSPHATASE INCREASED [None]
  - BLOOD AMYLASE INCREASED [None]
  - DEHYDRATION [None]
  - DIABETIC KETOACIDOSIS [None]
  - GAMMA-GLUTAMYLTRANSFERASE INCREASED [None]
  - HAEMATOCRIT DECREASED [None]
  - HEART RATE INCREASED [None]
  - LIPASE INCREASED [None]
  - METABOLIC ACIDOSIS [None]
  - SOPOR [None]
